FAERS Safety Report 6499213-7 (Version None)
Quarter: 2009Q4

REPORT INFORMATION
  Report Type: 
  Country: None (occurrence: None)
  Receive Date: 20091215
  Receipt Date: 20091207
  Transmission Date: 20100525
  Serious: Yes (Other)
  Sender: FDA-Public Use
  Company Number: US-ASTRAZENECA-2009SE30693

PATIENT
  Age: 82 Year
  Sex: Male

DRUGS (3)
  1. CRESTOR [Suspect]
     Route: 048
  2. PRAVIL [Concomitant]
  3. LYRICA [Concomitant]

REACTIONS (3)
  - HYPERTENSION [None]
  - NERVE INJURY [None]
  - STENT PLACEMENT [None]
